FAERS Safety Report 22336765 (Version 2)
Quarter: 2024Q2

REPORT INFORMATION
  Report Type: Spontaneous
  Country: US (occurrence: None)
  Receive Date: 20230518
  Receipt Date: 20240524
  Transmission Date: 20240715
  Serious: No
  Sender: FDA-Public Use
  Company Number: US-ROCHE-3205085

PATIENT
  Sex: Female
  Weight: 51.983 kg

DRUGS (7)
  1. ACTEMRA [Suspect]
     Active Substance: TOCILIZUMAB
     Indication: Rheumatoid arthritis
     Dosage: (STRENGTH: 162MG/0.9ML)
     Route: 058
     Dates: start: 20201209
  2. ACTEMRA [Suspect]
     Active Substance: TOCILIZUMAB
  3. ACTEMRA [Suspect]
     Active Substance: TOCILIZUMAB
     Dosage: (STRENGTH: 162MG/0.9ML)
     Route: 058
     Dates: start: 20201215
  4. ACTEMRA [Suspect]
     Active Substance: TOCILIZUMAB
  5. OMEPRAZOLE [Concomitant]
     Active Substance: DONEPEZIL HYDROCHLORIDE\OMEPRAZOLE\OMEPRAZOLE MAGNESIUM
  6. ATORVASTATIN [Concomitant]
     Active Substance: ATORVASTATIN
  7. ASPIRIN [Concomitant]
     Active Substance: ASPIRIN

REACTIONS (10)
  - Memory impairment [Not Recovered/Not Resolved]
  - Pain in extremity [Unknown]
  - Visual impairment [Not Recovered/Not Resolved]
  - Abdominal pain upper [Unknown]
  - Hyperchlorhydria [Unknown]
  - Flatulence [Unknown]
  - Syringe issue [Unknown]
  - Product quality issue [Unknown]
  - Product dose omission issue [Unknown]
  - Wrong technique in product usage process [Unknown]

NARRATIVE: CASE EVENT DATE: 20240206
